FAERS Safety Report 18494497 (Version 1)
Quarter: 2020Q4

REPORT INFORMATION
  Report Type: Spontaneous
  Country: JP (occurrence: JP)
  Receive Date: 20201112
  Receipt Date: 20201112
  Transmission Date: 20210114
  Serious: Yes (Other)
  Sender: FDA-Public Use
  Company Number: NVSJ2020JP008716

PATIENT
  Sex: Female

DRUGS (1)
  1. TASIGNA [Suspect]
     Active Substance: NILOTINIB
     Indication: PATERNAL EXPOSURE DURING PREGNANCY
     Dosage: EXPOSURE VIA PARTNER,  UNK
     Route: 050

REACTIONS (2)
  - Exposure via partner [Unknown]
  - Abortion [Unknown]

NARRATIVE: CASE EVENT DATE: 20201012
